FAERS Safety Report 6519069-3 (Version None)
Quarter: 2009Q4

REPORT INFORMATION
  Report Type: 
  Country: None (occurrence: None)
  Receive Date: 20091228
  Receipt Date: 20091218
  Transmission Date: 20100525
  Serious: Yes (Other)
  Sender: FDA-Public Use
  Company Number: GB-ROCHE-509345

PATIENT
  Age: 74 Year
  Sex: Male

DRUGS (3)
  1. AVASTIN [Suspect]
     Route: 031
  2. ACTIVASE [Suspect]
     Route: 050
  3. PERFLUOROPROPANE [Suspect]
     Route: 031

REACTIONS (1)
  - DETACHMENT OF RETINAL PIGMENT EPITHELIUM [None]
